FAERS Safety Report 6789848-6 (Version None)
Quarter: 2010Q2

REPORT INFORMATION
  Report Type: 
  Country: None (occurrence: None)
  Receive Date: 20100624
  Receipt Date: 20100622
  Transmission Date: 20101027
  Serious: Yes (Life-Threatening, Hospitalization)
  Sender: FDA-Public Use
  Company Number: PHHY2010JP37785

PATIENT
  Sex: Male
  Weight: 74 kg

DRUGS (6)
  1. FLUVASTATIN [Suspect]
     Indication: HYPERCHOLESTEROLAEMIA
     Dosage: 30 MG, UNK
     Route: 048
     Dates: start: 20051110
  2. FIRSTCIN [Suspect]
     Indication: PHARYNGITIS
     Dosage: 1 G, UNK
     Route: 041
     Dates: start: 20100531
  3. BLOPRESS [Concomitant]
     Dosage: 12 MG, UNK
     Route: 048
     Dates: start: 20050101
  4. ASPIRIN [Concomitant]
     Dosage: UNK
     Route: 048
     Dates: start: 20060101
  5. PLAVIX [Concomitant]
     Dosage: 75 MG, UNK
     Route: 048
     Dates: start: 20060101
  6. ZYLORIC [Concomitant]
     Dosage: 100 MG, UNK
     Route: 048
     Dates: start: 20090101

REACTIONS (4)
  - ANAPHYLACTIC SHOCK [None]
  - ATRIAL FIBRILLATION [None]
  - BLOOD PRESSURE INCREASED [None]
  - CARDIAC ARREST [None]
